FAERS Safety Report 11665226 (Version 1)
Quarter: 2015Q4

REPORT INFORMATION
  Report Type: Spontaneous
  Country: US (occurrence: None)
  Receive Date: 20151026
  Receipt Date: 20151026
  Transmission Date: 20160304
  Serious: Yes (Other)
  Sender: FDA-Public Use
  Company Number: None

PATIENT
  Age: 33 Year
  Sex: Male
  Weight: 97.52 kg

DRUGS (5)
  1. GNC MULTIVITAMIN [Concomitant]
  2. CLA [Concomitant]
  3. ESCITALOPRAM OXALATE 10MG ACCORD HLTHCARE [Suspect]
     Active Substance: ESCITALOPRAM OXALATE
     Indication: MALAISE
     Dosage: 1 PILL
     Route: 048
     Dates: start: 20150801, end: 20151022
  4. ESCITALOPRAM OXALATE 10MG ACCORD HLTHCARE [Suspect]
     Active Substance: ESCITALOPRAM OXALATE
     Indication: ASTHENIA
     Dosage: 1 PILL
     Route: 048
     Dates: start: 20150801, end: 20151022
  5. MAGNESIUM [Concomitant]
     Active Substance: MAGNESIUM

REACTIONS (3)
  - Migraine [None]
  - Product formulation issue [None]
  - Product quality issue [None]

NARRATIVE: CASE EVENT DATE: 20150801
